FAERS Safety Report 23082718 (Version 1)
Quarter: 2023Q4

REPORT INFORMATION
  Report Type: Spontaneous
  Country: IT (occurrence: IT)
  Receive Date: 20231019
  Receipt Date: 20231019
  Transmission Date: 20240109
  Serious: Yes (Other)
  Sender: FDA-Public Use
  Company Number: IT-ROCHE-3422953

PATIENT
  Age: 61 Year
  Sex: Female

DRUGS (8)
  1. BENDAMUSTINE [Suspect]
     Active Substance: BENDAMUSTINE
     Indication: Diffuse large B-cell lymphoma
     Dates: start: 20230822, end: 20230912
  2. CYCLOPHOSPHAMIDE [Suspect]
     Active Substance: CYCLOPHOSPHAMIDE
     Indication: Diffuse large B-cell lymphoma
     Dates: start: 20211127, end: 20220428
  3. PREDNISONE [Suspect]
     Active Substance: PREDNISONE
     Indication: Diffuse large B-cell lymphoma
     Dates: start: 20211127, end: 20220428
  4. RITUXIMAB [Suspect]
     Active Substance: RITUXIMAB
     Indication: Diffuse large B-cell lymphoma
     Dates: start: 20211127, end: 20220428
  5. RITUXIMAB [Suspect]
     Active Substance: RITUXIMAB
     Dates: start: 20230822, end: 20230912
  6. DOXORUBICIN HYDROCHLORIDE [Suspect]
     Active Substance: DOXORUBICIN HYDROCHLORIDE
     Indication: Diffuse large B-cell lymphoma
     Dates: start: 20211127, end: 20220428
  7. VINCRISTINE SULFATE [Suspect]
     Active Substance: VINCRISTINE SULFATE
     Indication: Diffuse large B-cell lymphoma
     Dates: start: 20211127, end: 20220428
  8. POLATUZUMAB VEDOTIN [Suspect]
     Active Substance: POLATUZUMAB VEDOTIN
     Indication: Diffuse large B-cell lymphoma
     Dates: start: 20230822, end: 20230912

REACTIONS (8)
  - Disease progression [Unknown]
  - Diffuse large B-cell lymphoma [Unknown]
  - Dysplasia [Unknown]
  - Cytopenia [Unknown]
  - Blood lactate dehydrogenase increased [Unknown]
  - Venous thrombosis [Unknown]
  - Haematotoxicity [Unknown]
  - Therapy non-responder [Unknown]
